FAERS Safety Report 8147997 (Version 3)
Quarter: 2013Q1

REPORT INFORMATION
  Report Type: Spontaneous
  Country: US (occurrence: US)
  Receive Date: 20110922
  Receipt Date: 20130306
  Transmission Date: 20140127
  Serious: No
  Sender: FDA-Public Use
  Company Number: US-ASTRAZENECA-2010SE38061

PATIENT
  Age: 42 Year
  Sex: Male
  Weight: 99.8 kg

DRUGS (11)
  1. SEROQUEL [Suspect]
     Indication: BIPOLAR I DISORDER
     Route: 048
  2. SEROQUEL [Suspect]
     Indication: BIPOLAR I DISORDER
     Route: 048
  3. SEROQUEL [Suspect]
     Indication: BIPOLAR I DISORDER
     Route: 048
     Dates: start: 2005, end: 20100802
  4. SEROQUEL [Suspect]
     Indication: BIPOLAR I DISORDER
     Route: 048
     Dates: start: 2005, end: 20100802
  5. SEROQUEL [Suspect]
     Indication: BIPOLAR I DISORDER
     Route: 048
  6. SEROQUEL [Suspect]
     Indication: BIPOLAR I DISORDER
     Route: 048
  7. SEROQUEL [Suspect]
     Indication: BIPOLAR I DISORDER
     Route: 048
  8. SEROQUEL [Suspect]
     Indication: BIPOLAR I DISORDER
     Route: 048
  9. LAMICTAL [Concomitant]
  10. FISH OIL [Concomitant]
  11. VITAMIN B COMPLEX [Concomitant]

REACTIONS (7)
  - Insomnia [Not Recovered/Not Resolved]
  - Bipolar disorder [Not Recovered/Not Resolved]
  - Dissociation [Unknown]
  - Mania [Unknown]
  - Drug dose omission [Unknown]
  - Drug prescribing error [Unknown]
  - Drug ineffective [Unknown]
